FAERS Safety Report 5202116-9 (Version None)
Quarter: 2007Q1

REPORT INFORMATION
  Report Type: 
  Country: None (occurrence: None)
  Receive Date: 20070103
  Receipt Date: 20061229
  Transmission Date: 20070707
  Serious: Yes (Hospitalization, Disabling)
  Sender: FDA-Public Use
  Company Number: TCI2006A03228

PATIENT
  Age: 29 Year
  Sex: Female

DRUGS (4)
  1. LEUPLIN FOR INJECTION KITI.88 (LEUPROLIDE ACETATE) (INJECTION) [Suspect]
     Indication: ENDOMETRIOSIS
     Dosage: 1.88 MG (1.88 MG, 1 IN 28 D) SUBCUTANEOUS
     Route: 058
     Dates: start: 20050401, end: 20050930
  2. LEUPLIN FOR INJECTION KITI.88 (LEUPROLIDE ACETATE) (INJECTION) [Suspect]
     Indication: PELVIC ABSCESS
     Dosage: 1.88 MG (1.88 MG, 1 IN 28 D) SUBCUTANEOUS
     Route: 058
     Dates: start: 20050401, end: 20050930
  3. LEUPLIN FOR INJECTION KITI.88 (LEUPROLIDE ACETATE) (INJECTION) [Suspect]
     Indication: ENDOMETRIOSIS
     Dosage: 1.88 MG (1.88 MG, 1 IN 28 D) SUBCUTANEOUS
     Route: 058
     Dates: start: 20051206, end: 20060428
  4. LEUPLIN FOR INJECTION KITI.88 (LEUPROLIDE ACETATE) (INJECTION) [Suspect]
     Indication: PELVIC ABSCESS
     Dosage: 1.88 MG (1.88 MG, 1 IN 28 D) SUBCUTANEOUS
     Route: 058
     Dates: start: 20051206, end: 20060428

REACTIONS (31)
  - ABDOMINAL DISCOMFORT [None]
  - ABDOMINAL DISTENSION [None]
  - ABDOMINAL PAIN [None]
  - ANTI-THYROID ANTIBODY POSITIVE [None]
  - ASCITES [None]
  - BLADDER CYST [None]
  - BLOOD THYROID STIMULATING HORMONE DECREASED [None]
  - CALCINOSIS [None]
  - DISEASE RECURRENCE [None]
  - FLUID RETENTION [None]
  - GASTROINTESTINAL DISORDER [None]
  - GOITRE [None]
  - HYPERTHYROIDISM [None]
  - ILEUS [None]
  - INTESTINAL OBSTRUCTION [None]
  - IRRITABILITY [None]
  - MALAISE [None]
  - MOOD ALTERED [None]
  - OVARIAN ABSCESS [None]
  - OVARIAN ENLARGEMENT [None]
  - OVARIAN HYPERSTIMULATION SYNDROME [None]
  - PALPITATIONS [None]
  - PELVIC ABSCESS [None]
  - PELVIC INFLAMMATORY DISEASE [None]
  - PELVIC MASS [None]
  - PERITONITIS [None]
  - TACHYCARDIA [None]
  - THYROXINE FREE INCREASED [None]
  - TRI-IODOTHYRONINE FREE INCREASED [None]
  - UTERINE ABSCESS [None]
  - UTERINE MASS [None]
